FAERS Safety Report 5932060-0 (Version None)
Quarter: 2008Q4

REPORT INFORMATION
  Report Type: 
  Country: None (occurrence: None)
  Receive Date: 20081027
  Receipt Date: 20081017
  Transmission Date: 20090506
  Serious: Yes (Other)
  Sender: FDA-Public Use
  Company Number: US-PFIZER INC-2008088725

PATIENT
  Sex: Female
  Weight: 81 kg

DRUGS (1)
  1. CHANTIX [Suspect]
     Indication: SMOKING CESSATION THERAPY
     Dates: start: 20080601, end: 20080101

REACTIONS (5)
  - ABDOMINAL DISCOMFORT [None]
  - ABNORMAL DREAMS [None]
  - DEPRESSION [None]
  - MIGRAINE [None]
  - PARANOIA [None]
